FAERS Safety Report 16132181 (Version 1)
Quarter: 2019Q1

REPORT INFORMATION
  Report Type: Spontaneous
  Country: US (occurrence: US)
  Receive Date: 20190225
  Receipt Date: 20190225
  Transmission Date: 20190418
  Serious: Yes (Hospitalization)
  Sender: FDA-Public Use
  Company Number: None

PATIENT
  Age: 22 Year
  Sex: Male

DRUGS (5)
  1. ALBUTEROL. [Concomitant]
     Active Substance: ALBUTEROL
  2. PROVENTIL [Concomitant]
     Active Substance: ALBUTEROL
  3. TOBRAMYCIN 300MG/5ML [Suspect]
     Active Substance: TOBRAMYCIN
     Indication: CYSTIC FIBROSIS
     Dosage: ?          OTHER DOSE:300 MG/5 ML;OTHER FREQUENCY:BID X28 OFF 28;?
     Route: 055
     Dates: start: 20170811
  4. HYPERSAL [Concomitant]
  5. PULMOZYME [Suspect]
     Active Substance: DORNASE ALFA
     Indication: CYSTIC FIBROSIS
     Route: 055
     Dates: start: 20170810

REACTIONS (2)
  - Lung infection [None]
  - Therapy cessation [None]

NARRATIVE: CASE EVENT DATE: 20190124
